FAERS Safety Report 5134229-4 (Version None)
Quarter: 2006Q4

REPORT INFORMATION
  Report Type: 
  Country: None (occurrence: None)
  Receive Date: 20061019
  Receipt Date: 20060823
  Transmission Date: 20070319
  Serious: Yes (Other)
  Sender: FDA-Public Use
  Company Number: 2006087880

PATIENT
  Age: 65 Year
  Sex: Male
  Weight: 95.2554 kg

DRUGS (4)
  1. PHENYTOIN [Suspect]
     Indication: CONVULSION
     Dosage: 400 MG (400 MG, 4 IN 1 D)
     Dates: start: 19610101
  2. PHENYTOIN [Suspect]
     Indication: CONVULSION
     Dates: start: 19920101, end: 19920101
  3. VITAMIN CAP [Concomitant]
  4. TAMSULOSIN HCL [Concomitant]

REACTIONS (8)
  - ANTICONVULSANT DRUG LEVEL BELOW THERAPEUTIC [None]
  - CIRCUMSTANCE OR INFORMATION CAPABLE OF LEADING TO MEDICATION ERROR [None]
  - FEELING ABNORMAL [None]
  - GRAND MAL CONVULSION [None]
  - LOSS OF CONSCIOUSNESS [None]
  - PHARMACEUTICAL PRODUCT COMPLAINT [None]
  - PHARMACEUTICAL PRODUCT COUNTERFEIT [None]
  - POOR QUALITY DRUG ADMINISTERED [None]
